FAERS Safety Report 18886255 (Version 2)
Quarter: 2021Q3

REPORT INFORMATION
  Report Type: Spontaneous
  Country: US (occurrence: US)
  Receive Date: 20210212
  Receipt Date: 20210812
  Transmission Date: 20211014
  Serious: No
  Sender: FDA-Public Use
  Company Number: US-SA-2021SA038717

PATIENT
  Sex: Female

DRUGS (1)
  1. DUPIXENT [Suspect]
     Active Substance: DUPILUMAB
     Indication: DERMATITIS ALLERGIC
     Dosage: 200 MG
     Route: 058

REACTIONS (4)
  - Rash [Recovering/Resolving]
  - Product use in unapproved indication [Unknown]
  - Eye disorder [Recovering/Resolving]
  - Initial insomnia [Unknown]
